FAERS Safety Report 24432471 (Version 1)
Quarter: 2024Q4

REPORT INFORMATION
  Report Type: Spontaneous
  Country: ZA (occurrence: ZA)
  Receive Date: 20241014
  Receipt Date: 20241014
  Transmission Date: 20250114
  Serious: Yes (Other)
  Sender: MACLEODS
  Company Number: ZA-MACLEODS PHARMA-MAC2024049381

PATIENT

DRUGS (31)
  1. CANDESARTAN [Suspect]
     Active Substance: CANDESARTAN
     Indication: Hypertension
     Route: 048
  2. IRBESARTAN [Suspect]
     Active Substance: IRBESARTAN
     Indication: Hypertension
     Dosage: 300 MG TAKE ONE TABLET DAILY
     Route: 048
  3. ACRIVASTINE [Suspect]
     Active Substance: ACRIVASTINE
     Indication: Hypersensitivity
     Dosage: 4 MG AS PRESCRIBED
     Route: 048
  4. PHENERGAN [Suspect]
     Active Substance: PROMETHAZINE HYDROCHLORIDE
     Indication: Product used for unknown indication
     Dosage: 25 MG TAKE ONE TABLET U
     Route: 048
  5. QUETIAPINE [Suspect]
     Active Substance: QUETIAPINE
     Indication: Mental disorder
     Dosage: 25 MG TAKE ONE TABLET AT NIGHT
     Route: 048
  6. DULOXETINE HYDROCHLORIDE [Suspect]
     Active Substance: DULOXETINE HYDROCHLORIDE
     Indication: Depression
     Dosage: 30 MG TAKE ONE CAPSULE ONCE DAILY
     Route: 048
  7. ASPIRIN [Suspect]
     Active Substance: ASPIRIN
     Indication: Thrombosis prophylaxis
     Dosage: 100 MG TAKE ONE TABLET ONCE DAILY
     Route: 048
  8. CITALOPRAM HYDROBROMIDE [Suspect]
     Active Substance: CITALOPRAM HYDROBROMIDE
     Indication: Mental disorder
     Dosage: 20 MG TAKE ONE TABLET ONCE DAILY
     Route: 048
  9. GLUCOPHAGE [Suspect]
     Active Substance: METFORMIN HYDROCHLORIDE
     Indication: Diabetes mellitus
     Dosage: 500 MG TAKE ONE TABLET ONCE DAILY
     Route: 048
  10. LORAZEPAM [Suspect]
     Active Substance: LORAZEPAM
     Indication: Anxiety
     Dosage: 1 MG TAKE ONE TABLET THREE TIMES A DAY
     Route: 065
  11. AMLODIPINE BESYLATE\INDAPAMIDE\PERINDOPRIL ARGININE [Suspect]
     Active Substance: AMLODIPINE BESYLATE\INDAPAMIDE\PERINDOPRIL ARGININE
     Indication: Hypertension
     Dosage: 10/2.5/10 MG TAKE ONE TABLET ONCE DAILY
     Route: 048
  12. TOPIRAMATE [Suspect]
     Active Substance: TOPIRAMATE
     Indication: Epilepsy
     Dosage: 25 MG TAKE ONE TABLET ONCE DAILY AT NIGHT
     Route: 048
  13. VITAMINS [Suspect]
     Active Substance: VITAMINS
     Indication: Blood cholesterol
     Dosage: 10 MG TAKE ONE TABLET AT NIGHT
     Route: 048
  14. AMLODIPINE BESYLATE [Suspect]
     Active Substance: AMLODIPINE BESYLATE
     Indication: Hypertension
     Dosage: 5 MG TAKE ONE TABLET ONCE DAILY
     Route: 048
  15. ETORICOXIB [Suspect]
     Active Substance: ETORICOXIB
     Indication: Pain
     Dosage: 60 MG TAKE ONE TABLET ONCE DAILY
     Route: 048
  16. LETROZOLE [Suspect]
     Active Substance: LETROZOLE
     Indication: Breast cancer
     Dosage: 2.5 MG TAKE ONE TABLET DAILY
     Route: 048
  17. CELECOXIB [Suspect]
     Active Substance: CELECOXIB
     Indication: Pain
     Dosage: 200 MG TAKE ONE TABLET
     Route: 048
  18. ETORICOXIB [Suspect]
     Active Substance: ETORICOXIB
     Indication: Pain
     Dosage: 90 MG TAKE ONE TABLET DAILY
     Route: 048
  19. ACETAMINOPHEN\ORPHENADRINE CITRATE [Suspect]
     Active Substance: ACETAMINOPHEN\ORPHENADRINE CITRATE
     Indication: Product used for unknown indication
     Dosage: TAKE TWO TABLETS AT NIGHT
     Route: 048
  20. PREDNISONE [Suspect]
     Active Substance: PREDNISONE
     Indication: Product used for unknown indication
     Dosage: 5 MG TAKE SIX TABLETS IN THE MORNING FOR THREE DAYS
     Route: 048
  21. LETROZOLE [Suspect]
     Active Substance: LETROZOLE
     Indication: Antioestrogen therapy
     Dosage: 2.5 MG TAKE ONE TABLET DAILY
     Route: 048
  22. LETROZOLE [Suspect]
     Active Substance: LETROZOLE
     Indication: Breast cancer
  23. DEVICE [Suspect]
     Active Substance: DEVICE
     Indication: Diabetes mellitus
     Dosage: 582009 AS DIRECTED
     Route: 058
  24. HEPARIN [Suspect]
     Active Substance: HEPARIN SODIUM
     Indication: Product used for unknown indication
     Dosage: 5000 IU AS DIRECTED
     Route: 058
  25. ALCOHOL SWAB [Suspect]
     Active Substance: ISOPROPYL ALCOHOL
     Indication: Product used for unknown indication
     Dosage: 029010 AS DIRECTED
     Route: 061
  26. ZOLPIDEM TARTRATE [Suspect]
     Active Substance: ZOLPIDEM TARTRATE
     Indication: Insomnia
     Dosage: 10 MG TAKE ONE TABLET AT NIGHT
     Route: 048
  27. INDAPAMIDE [Suspect]
     Active Substance: INDAPAMIDE
     Indication: Hypertension
     Dosage: 1.5 MG TAKE ONE TABLET DAILY IN THE MORNING
     Route: 048
  28. FLUCONAZOLE [Suspect]
     Active Substance: FLUCONAZOLE
     Indication: Product used for unknown indication
     Dosage: 150 MG TAKE ONE CAPSULE AT ONCE
     Route: 048
  29. CEFADROXIL [Suspect]
     Active Substance: CEFADROXIL
     Indication: Product used for unknown indication
     Dosage: 500 MG TAKE TWO CAPSULES THREE TIMES A DAY
     Route: 048
  30. ACETAMINOPHEN\DICYCLOMINE [Suspect]
     Active Substance: ACETAMINOPHEN\DICYCLOMINE
     Indication: Product used for unknown indication
     Dosage: AS  PRESCRIBED
     Route: 048
  31. CYANOCOBALAMIN [Suspect]
     Active Substance: CYANOCOBALAMIN
     Indication: Product used for unknown indication
     Dosage: 1000 MCG  INJECT 1ML  2-4 TIMES A WEEK
     Route: 058

REACTIONS (3)
  - Cataract [Unknown]
  - Glaucoma [Unknown]
  - Arthritis [Unknown]
